FAERS Safety Report 7555681-0 (Version None)
Quarter: 2011Q2

REPORT INFORMATION
  Report Type: 
  Country: None (occurrence: None)
  Receive Date: 20110617
  Receipt Date: 20110601
  Transmission Date: 20111010
  Serious: Yes (Hospitalization)
  Sender: FDA-Public Use
  Company Number: JP-GENENTECH-319666

PATIENT
  Sex: Male
  Weight: 78 kg

DRUGS (10)
  1. KREMEZIN [Concomitant]
  2. BLINDED RANIBIZUMAB [Suspect]
     Indication: DIABETIC RETINAL OEDEMA
     Dosage: UNK
     Route: 031
     Dates: start: 20100721
  3. AVASTIN [Suspect]
     Indication: DIABETIC RETINAL OEDEMA
     Dosage: UNK
     Dates: start: 20100903
  4. AVAPRO [Concomitant]
  5. ALLOZYM [Concomitant]
  6. AMLODIPINE [Concomitant]
  7. ZETIA [Concomitant]
  8. SODIUM BICARBONATE [Concomitant]
  9. PLACEBO [Suspect]
     Indication: DIABETIC RETINAL OEDEMA
     Dosage: UNK
     Route: 031
     Dates: start: 20100721
  10. FUROSEMIDE [Concomitant]

REACTIONS (2)
  - INAPPROPRIATE SCHEDULE OF DRUG ADMINISTRATION [None]
  - RENAL FAILURE CHRONIC [None]
